FAERS Safety Report 6456805-9 (Version None)
Quarter: 2009Q4

REPORT INFORMATION
  Report Type: 
  Country: None (occurrence: None)
  Receive Date: 20091125
  Receipt Date: 20091117
  Transmission Date: 20100525
  Serious: Yes (Hospitalization)
  Sender: FDA-Public Use
  Company Number: SE-ROCHE-663195

PATIENT

DRUGS (2)
  1. CAPECITABINE [Suspect]
     Dosage: LAST DOSE PRIOR TO SAE: 17 AUGUST 2009, ON DAY 1-14 EVERY 3 WEEKS
     Route: 048
     Dates: start: 20090720
  2. DOCETAXEL [Suspect]
     Dosage: ADMINISTRED AS 30 MIN INFUSION ON CYCLE DAY 1, 8 AND 15 OR CYCLE DAY 1 AND 8 IN ALTERNATING 3 WEEKLY
     Route: 042

REACTIONS (2)
  - ATRIAL FIBRILLATION [None]
  - OESOPHAGEAL PERFORATION [None]
